FAERS Safety Report 19707661 (Version 2)
Quarter: 2021Q3

REPORT INFORMATION
  Report Type: Spontaneous
  Country: US (occurrence: US)
  Receive Date: 20210817
  Receipt Date: 20210924
  Transmission Date: 20211014
  Serious: No
  Sender: FDA-Public Use
  Company Number: US-MILLICENT HOLDINGS LTD.-MILL20210719

PATIENT
  Age: 70 Year
  Sex: Female

DRUGS (3)
  1. INTRAROSA [Suspect]
     Active Substance: PRASTERONE
     Indication: PELVIC FLOOR MUSCLE WEAKNESS
  2. INTRAROSA [Suspect]
     Active Substance: PRASTERONE
     Indication: URINARY TRACT INFECTION
  3. INTRAROSA [Suspect]
     Active Substance: PRASTERONE
     Indication: VULVOVAGINAL DRYNESS
     Dosage: UNKNOWN
     Route: 067
     Dates: start: 2021, end: 2021

REACTIONS (3)
  - Drug ineffective for unapproved indication [Recovering/Resolving]
  - Off label use [Unknown]
  - Product packaging difficult to open [Unknown]

NARRATIVE: CASE EVENT DATE: 2021
